FAERS Safety Report 9725780 (Version 2)
Quarter: 2013Q4

REPORT INFORMATION
  Report Type: Spontaneous
  Country: US (occurrence: GB)
  Receive Date: 20131203
  Receipt Date: 20131203
  Transmission Date: 20140711
  Serious: Yes (Other)
  Sender: FDA-Public Use
  Company Number: GB-ASTELLAS-2013EU008168

PATIENT
  Age: 60 Year
  Sex: Female
  Weight: 121 kg

DRUGS (11)
  1. VESICARE [Suspect]
     Indication: HYPERTONIC BLADDER
     Dosage: 5 MG, UID/QD
     Route: 048
     Dates: start: 20130903
  2. REPLENS [Concomitant]
     Dosage: UNK
     Route: 065
  3. SIMVASTATIN [Concomitant]
     Dosage: 1 UNK, UID/QD
     Route: 065
  4. TIMODINE                           /00446501/ [Concomitant]
     Dosage: 30 G, UNKNOWN/D
     Route: 065
  5. ULIPRISTAL [Concomitant]
     Dosage: 1 UNK, UID/QD
     Route: 065
  6. ANUSOL HC [Concomitant]
     Dosage: 30 G, UNKNOWN/D
     Route: 065
  7. ANUSOL                             /00117301/ [Concomitant]
     Dosage: UNK
     Route: 065
  8. ASPIRIN [Concomitant]
     Dosage: 1 UNK, UID/QD
     Route: 065
  9. BECLOMETASONE [Concomitant]
     Dosage: 1 DF, BID
     Route: 065
  10. FORMOTEROL [Concomitant]
     Dosage: 1 DF, BID
     Route: 065
  11. CETRIZINE [Concomitant]
     Dosage: 1 UNK, UID/QD
     Route: 065

REACTIONS (3)
  - Urinary tract infection [Recovered/Resolved]
  - Abdominal distension [Recovered/Resolved]
  - Urinary hesitation [Unknown]
